FAERS Safety Report 6786173-4 (Version None)
Quarter: 2010Q2

REPORT INFORMATION
  Report Type: 
  Country: None (occurrence: None)
  Receive Date: 20100622
  Receipt Date: 20100622
  Transmission Date: 20101027
  Serious: No
  Sender: FDA-Public Use
  Company Number: None

PATIENT
  Age: 30 Year
  Sex: Female
  Weight: 58.9676 kg

DRUGS (2)
  1. YASMIN [Suspect]
     Indication: DYSMENORRHOEA
     Dosage: 3 MG DROSPIRENONE 1 PO; .03 MG ETHYNL ESTRADIOL 1 PO
     Route: 048
     Dates: start: 20100327, end: 20100618
  2. YASMIN [Suspect]
     Indication: PREGNANCY
     Dosage: 3 MG DROSPIRENONE 1 PO; .03 MG ETHYNL ESTRADIOL 1 PO
     Route: 048
     Dates: start: 20100327, end: 20100618

REACTIONS (5)
  - DEPRESSION [None]
  - DYSMENORRHOEA [None]
  - HUNGER [None]
  - MUSCLE SPASMS [None]
  - PAIN IN JAW [None]
